FAERS Safety Report 8297962-1 (Version None)
Quarter: 2012Q2

REPORT INFORMATION
  Report Type: 
  Country: None (occurrence: None)
  Receive Date: 20120419
  Receipt Date: 20120417
  Transmission Date: 20120825
  Serious: Yes (Death)
  Sender: FDA-Public Use
  Company Number: US-PFIZER INC-2012096057

PATIENT

DRUGS (3)
  1. PROCARDIA XL [Suspect]
  2. ACCUPRIL [Suspect]
  3. ZOLOFT [Suspect]
     Dosage: 50 MG, UNK

REACTIONS (1)
  - DEATH [None]
